FAERS Safety Report 11234506 (Version 1)
Quarter: 2015Q3

REPORT INFORMATION
  Report Type: Spontaneous
  Country: US (occurrence: US)
  Receive Date: 20150702
  Receipt Date: 20150702
  Transmission Date: 20151125
  Serious: Yes (Life-Threatening, Hospitalization, Other)
  Sender: FDA-Public Use
  Company Number: US-ACTAVIS-2015-12779

PATIENT
  Age: 26 Year
  Sex: Male

DRUGS (1)
  1. FENTANYL UNKNOWN STRENGTH (WATSON LABORATORIES) [Suspect]
     Active Substance: FENTANYL
     Indication: INTENTIONAL OVERDOSE
     Dosage: 50 ?G, TOTAL
     Route: 048

REACTIONS (5)
  - Mental impairment [Recovered/Resolved]
  - Miosis [Unknown]
  - Incorrect route of drug administration [Unknown]
  - Intentional overdose [Recovered/Resolved]
  - Respiratory depression [Recovered/Resolved]
